FAERS Safety Report 4762127-4 (Version None)
Quarter: 2005Q3

REPORT INFORMATION
  Report Type: 
  Country: None (occurrence: None)
  Receive Date: 20050901
  Receipt Date: 20050504
  Transmission Date: 20060218
  Serious: No
  Sender: FDA-Public Use
  Company Number: 200510883BWH

PATIENT
  Age: 64 Year
  Sex: Male

DRUGS (4)
  1. LEVITRA [Suspect]
     Dosage: 20 MG, TOTAL DAILY, ORAL; 30 MG, TOTALY DAILY, ORAL
     Route: 048
  2. CAVERJECT [Concomitant]
  3. LISINOPRIL [Concomitant]
  4. ZOCOR [Concomitant]

REACTIONS (1)
  - DRUG INEFFECTIVE [None]
